FAERS Safety Report 5336491-1 (Version None)
Quarter: 2007Q2

REPORT INFORMATION
  Report Type: 
  Country: None (occurrence: None)
  Receive Date: 20070529
  Receipt Date: 20070515
  Transmission Date: 20071010
  Serious: Yes (Other)
  Sender: FDA-Public Use
  Company Number: IT-ELI_LILLY_AND_COMPANY-IT200705005741

PATIENT
  Age: 36 Year
  Sex: Female

DRUGS (2)
  1. ZYPREXA [Suspect]
     Indication: SCHIZOAFFECTIVE DISORDER
     Dosage: 20 MG, DAILY (1/D)
     Route: 048
     Dates: start: 20070301
  2. ELOPRAM [Concomitant]
     Dosage: 10 MG, UNK
     Dates: end: 20070510

REACTIONS (2)
  - EPILEPSY [None]
  - GALACTORRHOEA [None]
